FAERS Safety Report 20059417 (Version 1)
Quarter: 2021Q4

REPORT INFORMATION
  Report Type: Spontaneous
  Country: US (occurrence: None)
  Receive Date: 20211111
  Receipt Date: 20211111
  Transmission Date: 20220303
  Serious: Yes (Hospitalization)
  Sender: FDA-Public Use
  Company Number: None

PATIENT
  Age: 66 Year
  Sex: Male

DRUGS (1)
  1. XALKORI [Suspect]
     Active Substance: CRIZOTINIB
     Indication: Brain neoplasm malignant
     Dosage: FREQUENCY : TWICE A DAY;?TAKE 2 CAPSULES BY MOUTH TWICE DAILY
     Route: 048
     Dates: start: 20210811, end: 20211101

REACTIONS (3)
  - Therapy cessation [None]
  - Lung disorder [None]
  - Respiratory disorder [None]

NARRATIVE: CASE EVENT DATE: 20211101
